FAERS Safety Report 6204390-9 (Version None)
Quarter: 2009Q2

REPORT INFORMATION
  Report Type: 
  Country: None (occurrence: None)
  Receive Date: 20090522
  Receipt Date: 20090507
  Transmission Date: 20091009
  Serious: Yes (Hospitalization)
  Sender: FDA-Public Use
  Company Number: 232577K09USA

PATIENT
  Age: 35 Year
  Sex: Female
  Weight: 103 kg

DRUGS (5)
  1. REBIF [Suspect]
     Indication: MULTIPLE SCLEROSIS
     Dosage: 44 MCG, 3 IN 1 WEEKS, SUBCUTANEOUS
     Route: 058
     Dates: start: 20081019
  2. ATENOLOL [Concomitant]
  3. PREVACID [Concomitant]
  4. PROAIR (SALBUTAMOL SULFATE) [Concomitant]
  5. PROZAC [Concomitant]

REACTIONS (2)
  - CONDITION AGGRAVATED [None]
  - MULTIPLE SCLEROSIS [None]
